FAERS Safety Report 13005139 (Version 1)
Quarter: 2016Q4

REPORT INFORMATION
  Report Type: Spontaneous
  Country: DE (occurrence: DE)
  Receive Date: 20161207
  Receipt Date: 20161207
  Transmission Date: 20170207
  Serious: Yes (Other)
  Sender: FDA-Public Use
  Company Number: DE-CLINIGEN GROUP PLC/ CLINIGEN HEALTHCARE LTD-E2B_00002749

PATIENT
  Age: 33 Year
  Sex: Female

DRUGS (3)
  1. FOTEMUSTINE [Suspect]
     Active Substance: FOTEMUSTINE
     Indication: MALIGNANT MELANOMA
     Dosage: 100 MG/M2
     Route: 042
  2. UNKNOWN [Concomitant]
     Active Substance: UNSPECIFIED INGREDIENT
     Route: 065
  3. ETHYOL [Suspect]
     Active Substance: AMIFOSTINE
     Indication: ADVERSE DRUG REACTION
     Dosage: 740 MG/M2
     Route: 042

REACTIONS (2)
  - Thrombocytopenia [Unknown]
  - Leukopenia [Unknown]
